FAERS Safety Report 9672127 (Version 5)
Quarter: 2014Q1

REPORT INFORMATION
  Report Type: Report from Study
  Country: BE (occurrence: BE)
  Receive Date: 20131106
  Receipt Date: 20140203
  Transmission Date: 20141002
  Serious: Yes (Other)
  Sender: FDA-Public Use
  Company Number: PHHY2013BE125574

PATIENT
  Age: 34 Year
  Sex: Female

DRUGS (5)
  1. GILENYA [Suspect]
     Indication: MULTIPLE SCLEROSIS
     Dosage: 0.5 MG, QD
     Route: 048
     Dates: start: 20130730
  2. SOLUMEDROL [Suspect]
     Indication: MULTIPLE SCLEROSIS RELAPSE
     Dosage: 1 G, QD
     Dates: start: 20130823, end: 20130825
  3. AUGMENTIN [Suspect]
     Indication: LARYNGITIS
  4. OMEPRAZOLE [Concomitant]
     Dosage: 20 MG, QD
     Route: 048
  5. COLECALCIFEROL [Concomitant]
     Dosage: 1 DF, QD
     Route: 048
     Dates: start: 20130402

REACTIONS (5)
  - Anorectal human papilloma virus infection [Recovered/Resolved]
  - Proctalgia [Recovering/Resolving]
  - Anogenital warts [Recovered/Resolved]
  - Laryngitis [Recovered/Resolved]
  - Vaginal infection [Recovered/Resolved]
